FAERS Safety Report 9149023 (Version 1)
Quarter: 2013Q1

REPORT INFORMATION
  Report Type: Spontaneous
  Country: US (occurrence: US)
  Receive Date: 20130308
  Receipt Date: 20130308
  Transmission Date: 20140127
  Serious: No
  Sender: FDA-Public Use
  Company Number: US-ENDO PHARMACEUTICALS INC.-OPCR20121597

PATIENT
  Sex: Male

DRUGS (5)
  1. OPANA ER [Suspect]
     Indication: PAIN
     Route: 048
     Dates: start: 201204, end: 2012
  2. OPANA ER [Suspect]
     Route: 048
     Dates: start: 2012, end: 2012
  3. OPANA ER [Suspect]
     Route: 048
     Dates: start: 2012, end: 2012
  4. OPANA ER [Suspect]
     Route: 048
     Dates: start: 2012, end: 2012
  5. OPANA ER [Suspect]
     Route: 048
     Dates: start: 2012, end: 2012

REACTIONS (5)
  - Malaise [Not Recovered/Not Resolved]
  - Asthenia [Unknown]
  - Nausea [Unknown]
  - Poor quality sleep [Unknown]
  - Drug ineffective [Recovered/Resolved]
